FAERS Safety Report 8877440 (Version 2)
Quarter: 2012Q4

REPORT INFORMATION
  Report Type: 
  Country: US (occurrence: US)
  Receive Date: 20121024
  Receipt Date: 20121119
  Transmission Date: 20130627
  Serious: No
  Sender: FDA-Public Use
  Company Number: US-PFIZER INC-2012264899

PATIENT
  Age: 29 Year
  Sex: Male
  Weight: 88.44 kg

DRUGS (6)
  1. PRISTIQ [Suspect]
     Indication: ANXIETY
     Dosage: 50 mg every other day
     Dates: start: 2012, end: 2012
  2. PRISTIQ [Suspect]
     Indication: DEPRESSION
     Dosage: 100 mg, Daily
     Dates: start: 2012, end: 201210
  3. PRISTIQ [Suspect]
     Indication: OBSESSIVE-COMPULSIVE DISORDER
     Dosage: 50 mg every other day
     Dates: start: 201210, end: 2012
  4. PRISTIQ [Suspect]
     Dosage: 50 mg, daily
     Dates: start: 20121105
  5. KLONOPIN [Concomitant]
     Indication: ANXIETY
     Dosage: 0.5 mg, as needed
  6. KLONOPIN [Concomitant]
     Indication: PANIC ATTACKS

REACTIONS (7)
  - Off label use [Unknown]
  - Paraesthesia [Unknown]
  - Dizziness [Unknown]
  - Irritability [Unknown]
  - Lethargy [Unknown]
  - Feeling abnormal [Unknown]
  - Anxiety [Not Recovered/Not Resolved]
